FAERS Safety Report 20876783 (Version 2)
Quarter: 2022Q3

REPORT INFORMATION
  Report Type: Report from Study
  Country: AU (occurrence: AU)
  Receive Date: 20220526
  Receipt Date: 20220809
  Transmission Date: 20221026
  Serious: Yes (Death, Hospitalization)
  Sender: FDA-Public Use
  Company Number: AU-JNJFOC-20220534797

PATIENT
  Age: 30 Year
  Sex: Male

DRUGS (8)
  1. SPRAVATO [Suspect]
     Active Substance: ESKETAMINE
     Indication: Product used for unknown indication
     Dates: start: 202204
  2. SPRAVATO [Suspect]
     Active Substance: ESKETAMINE
     Dosage: APR/MAY-2022
  3. SPRAVATO [Suspect]
     Active Substance: ESKETAMINE
     Dosage: 16/MAY/2022-DISCONTINUED
     Dates: end: 20220516
  4. DULOXETINE [Suspect]
     Active Substance: DULOXETINE
     Indication: Antidepressant therapy
     Route: 065
  5. DULOXETINE [Suspect]
     Active Substance: DULOXETINE
     Route: 065
  6. AMPHETAMINE [Concomitant]
     Active Substance: AMPHETAMINE
     Route: 065
  7. METHYLPHENIDATE [Concomitant]
     Active Substance: METHYLPHENIDATE
     Route: 065
  8. OXYCODONE [Concomitant]
     Active Substance: OXYCODONE
     Indication: Back pain
     Dosage: OCCASIONAL
     Route: 065

REACTIONS (2)
  - Completed suicide [Fatal]
  - Serotonin syndrome [Unknown]

NARRATIVE: CASE EVENT DATE: 20220501
